FAERS Safety Report 17686841 (Version 2)
Quarter: 2020Q2

REPORT INFORMATION
  Report Type: Report from Study
  Country: DE (occurrence: DE)
  Receive Date: 20200421
  Receipt Date: 20200424
  Transmission Date: 20200714
  Serious: Yes (Other)
  Sender: FDA-Public Use
  Company Number: DE-AMGEN-DEUNI2020062378

PATIENT
  Age: 70 Year
  Sex: Male
  Weight: 95 kg

DRUGS (9)
  1. METAMIZOL [Concomitant]
     Active Substance: METAMIZOLE SODIUM
     Dosage: 500 MILLIGRAM, AS NECESSARY
     Route: 048
  2. CARFILZOMIB [Suspect]
     Active Substance: CARFILZOMIB
     Indication: PLASMA CELL MYELOMA
     Dosage: 20 MILLIGRAM/SQ. METER
     Route: 065
     Dates: start: 20190704
  3. ACICLOVIR-RATIOPHARM [ACICLOVIR] [Concomitant]
     Active Substance: ACYCLOVIR
     Dosage: 1200 MILLIGRAM, TID
     Route: 048
     Dates: start: 20190410
  4. UROMITEXAN [Concomitant]
     Active Substance: MESNA
     Dosage: 800 MILLIGRAM, PER CYCLE
     Route: 048
     Dates: start: 20190410
  5. ONDANSETRON [Concomitant]
     Active Substance: ONDANSETRON
     Dosage: 4 MILLIGRAM, PER CYCLE
     Route: 042
     Dates: start: 20190410
  6. COTRIM FORTE [Concomitant]
     Active Substance: SULFAMETHOXAZOLE\TRIMETHOPRIM
     Dosage: 960 MILLIGRAM, QOD
     Route: 048
     Dates: start: 20190410
  7. CARFILZOMIB [Suspect]
     Active Substance: CARFILZOMIB
     Dosage: 27 MILLIGRAM/SQ. METER
     Route: 065
  8. RAMIPRIL BETA COMP [Concomitant]
     Dosage: 5 MILLIGRAM, QD
     Route: 048
  9. LENALIDOMIDE [Suspect]
     Active Substance: LENALIDOMIDE
     Indication: PLASMA CELL MYELOMA
     Dosage: 25 MILLIGRAM, PER CHEMO REGIM
     Route: 065

REACTIONS (1)
  - Dermatitis exfoliative generalised [Recovered/Resolved]

NARRATIVE: CASE EVENT DATE: 20190821
